FAERS Safety Report 7301694-3 (Version None)
Quarter: 2011Q1

REPORT INFORMATION
  Report Type: 
  Country: None (occurrence: None)
  Receive Date: 20110218
  Receipt Date: 20110209
  Transmission Date: 20110831
  Serious: Yes (Life-Threatening)
  Sender: FDA-Public Use
  Company Number: US-ROCHE-704462

PATIENT
  Sex: Female
  Weight: 68 kg

DRUGS (10)
  1. ZOFRAN [Concomitant]
  2. XELODA [Suspect]
     Dosage: FREQUENCY: BID X 14 DAYS.
     Route: 048
     Dates: start: 20081201
  3. AVASTIN [Suspect]
     Dosage: DRUG ONSET DATE: ON AND OFF SINCE 2008.
     Route: 042
     Dates: start: 20080101
  4. ADRIAMYCIN PFS [Concomitant]
  5. ZOMETA [Suspect]
     Route: 042
     Dates: start: 20081216, end: 20100401
  6. TAXOTERE [Concomitant]
  7. AVASTIN [Suspect]
     Dosage: DISCONTINUED. DOSE : 7.5 MG/KG, INFUSION DURATION 40 MINUTES.
     Route: 042
     Dates: start: 20100128, end: 20100505
  8. AROMASIN [Concomitant]
  9. COMPAZINE [Concomitant]
  10. MEGACE [Concomitant]
     Dosage: DRUG: MEGACE ES.

REACTIONS (1)
  - OSTEONECROSIS OF JAW [None]
